FAERS Safety Report 9618048 (Version 2)
Quarter: 2013Q4

REPORT INFORMATION
  Report Type: Report from Study
  Country: CO (occurrence: CO)
  Receive Date: 20131012
  Receipt Date: 20131014
  Transmission Date: 20140711
  Serious: Yes (Life-Threatening, Hospitalization, Other)
  Sender: FDA-Public Use
  Company Number: CO-ROCHE-1287558

PATIENT
  Age: 70 Year
  Sex: Male
  Weight: 81 kg

DRUGS (2)
  1. LUCENTIS [Suspect]
     Indication: EYE HAEMORRHAGE
     Route: 050
     Dates: start: 20130426
  2. LUCENTIS [Suspect]
     Indication: MACULAR DEGENERATION
     Dosage: REGIMEN 2
     Route: 050

REACTIONS (2)
  - Pulmonary infarction [Recovering/Resolving]
  - Pneumonia [Recovering/Resolving]
